FAERS Safety Report 13598147 (Version 1)
Quarter: 2017Q2

REPORT INFORMATION
  Report Type: Spontaneous
  Country: IT (occurrence: IT)
  Receive Date: 20170531
  Receipt Date: 20170531
  Transmission Date: 20170830
  Serious: Yes (Hospitalization)
  Sender: FDA-Public Use
  Company Number: IT-PFIZER INC-2017235078

PATIENT
  Age: 74 Year
  Sex: Male

DRUGS (8)
  1. CEFTRIAXONE SODIUM. [Suspect]
     Active Substance: CEFTRIAXONE SODIUM
     Indication: LEUKOCYTOSIS
     Dosage: UNK UNK, WEEKLY
     Route: 042
     Dates: start: 20160721, end: 20160721
  2. ATORVASTATIN CALCIUM TRIHYDRATE [Concomitant]
     Active Substance: ATORVASTATIN CALCIUM
     Dosage: UNK
     Route: 048
  3. PERFALGAN [Concomitant]
     Active Substance: ACETAMINOPHEN
     Dosage: UNK
  4. LOSARTAN POTASSIUM. [Concomitant]
     Active Substance: LOSARTAN POTASSIUM
     Dosage: UNK
     Route: 048
  5. METRONIDAZOLE. [Suspect]
     Active Substance: METRONIDAZOLE
     Indication: LEUKOCYTOSIS
     Dosage: UNK
     Dates: start: 20160721, end: 20160721
  6. TIKLID [Concomitant]
     Active Substance: TICLOPIDINE HYDROCHLORIDE
     Dosage: UNK
     Route: 048
  7. PANTOPRAZOLE [Concomitant]
     Active Substance: PANTOPRAZOLE
     Dosage: UNK
     Route: 048
  8. LIMICAN [Concomitant]
     Active Substance: ALIZAPRIDE HYDROCHLORIDE
     Dosage: UNK

REACTIONS (6)
  - Respiratory arrest [Unknown]
  - Syncope [Unknown]
  - Rash [Unknown]
  - Anaphylactic shock [Unknown]
  - Cold sweat [Unknown]
  - Erythema [Unknown]

NARRATIVE: CASE EVENT DATE: 20160721
